FAERS Safety Report 6464212-8 (Version None)
Quarter: 2009Q4

REPORT INFORMATION
  Report Type: 
  Country: None (occurrence: None)
  Receive Date: 20091201
  Receipt Date: 20091119
  Transmission Date: 20100525
  Serious: Yes (Other)
  Sender: FDA-Public Use
  Company Number: PHHY2009BE47012

PATIENT
  Sex: Male

DRUGS (2)
  1. GLEEVEC [Suspect]
     Indication: CHRONIC MYELOID LEUKAEMIA
     Dosage: 400 MG/DAY
     Route: 048
     Dates: start: 20090814
  2. SINTROM [Concomitant]

REACTIONS (5)
  - PANCYTOPENIA [None]
  - RECTAL HAEMORRHAGE [None]
  - RECTAL NEOPLASM [None]
  - RENAL FAILURE CHRONIC [None]
  - SURGERY [None]
